FAERS Safety Report 9601257 (Version 1)
Quarter: 2013Q4

REPORT INFORMATION
  Report Type: Spontaneous
  Country: CA (occurrence: CA)
  Receive Date: 20131006
  Receipt Date: 20131006
  Transmission Date: 20140711
  Serious: Yes (Other)
  Sender: FDA-Public Use
  Company Number: CA-MYLANLABS-2013S1021674

PATIENT
  Age: 69 Year
  Sex: Male

DRUGS (12)
  1. GABAPENTIN [Suspect]
     Indication: ESSENTIAL TREMOR
     Dosage: 300MG AT BEDTIME ON D1; TITRATED TO 300MG TWICE DAILY
     Route: 065
  2. GABAPENTIN [Suspect]
     Indication: ESSENTIAL TREMOR
     Dosage: ON D2; TITRATED TO 300MG THREE TIMES DAILY ON D3
     Route: 065
  3. GABAPENTIN [Suspect]
     Indication: ESSENTIAL TREMOR
     Dosage: THEN INCREASED BY 300MG/WEEK TO TARGET OF 600MG/3 TIMES DAILY
     Route: 065
  4. PRIMIDONE [Concomitant]
     Indication: ESSENTIAL TREMOR
     Dosage: 25MG/DAILY; TITRATED TO 250MG DAILY
     Route: 065
  5. PRIMIDONE [Concomitant]
     Indication: ESSENTIAL TREMOR
     Dosage: 250MG DAILY; INCREASED TO 375MG DAILY
     Route: 065
  6. PRIMIDONE [Concomitant]
     Indication: ESSENTIAL TREMOR
     Dosage: 375MG DAILY (250MG IN MORNING, 125MG AT NIGHT); INCREASED TO 500MG DAILY
     Route: 065
  7. PRIMIDONE [Concomitant]
     Indication: ESSENTIAL TREMOR
     Dosage: 500MG DAILY; DECREASED TO 375MG DAILY
     Route: 065
  8. PREDNISONE [Concomitant]
     Indication: MYASTHENIA GRAVIS
     Dosage: VARIOUS DOSES; RECEIVING 12MG DAILY AT ADR ONSET
     Route: 065
  9. SULFASALAZINE [Concomitant]
     Route: 065
  10. AMITRIPTYLINE [Concomitant]
     Dosage: 10MG (1-3 TABLETS) AT BEDTIME
     Route: 065
  11. DIAZEPAM [Concomitant]
     Dosage: 5MG AS NEEDED; AT BEDTIME
     Route: 065
  12. PREDNISONE [Concomitant]
     Indication: MYASTHENIA GRAVIS
     Dosage: 12MG DAILY
     Route: 065

REACTIONS (2)
  - Myasthenia gravis [Recovered/Resolved]
  - Off label use [Recovered/Resolved]
